FAERS Safety Report 17545107 (Version 2)
Quarter: 2020Q1

REPORT INFORMATION
  Report Type: Spontaneous
  Country: IT (occurrence: IT)
  Receive Date: 20200316
  Receipt Date: 20200316
  Transmission Date: 20200409
  Serious: Yes (Death)
  Sender: FDA-Public Use
  Company Number: IT-CHEPLA-C20200991_02

PATIENT
  Age: 43 Year
  Sex: Male

DRUGS (5)
  1. VCR (VINCRISTINE) [Suspect]
     Active Substance: VINCRISTINE
     Indication: KAPOSI^S SARCOMA
     Route: 065
  2. BLEO (BLEOMYCIN) [Suspect]
     Active Substance: BLEOMYCIN SULFATE
     Indication: KAPOSI^S SARCOMA
     Route: 065
  3. GCV (GANCICLOVIR) [Suspect]
     Active Substance: GANCICLOVIR
     Indication: ANTIVIRAL TREATMENT
     Route: 065
  4. DOXO (DOXORUBICIN) [Suspect]
     Active Substance: DOXORUBICIN
     Indication: KAPOSI^S SARCOMA
     Route: 065
  5. FOS (FOSCARNET) [Suspect]
     Active Substance: FOSCARNET
     Indication: ANTIVIRAL TREATMENT
     Route: 065

REACTIONS (1)
  - Bacterial sepsis [Fatal]
